FAERS Safety Report 5449828-X (Version None)
Quarter: 2007Q3

REPORT INFORMATION
  Report Type: 
  Country: None (occurrence: None)
  Receive Date: 20070828
  Receipt Date: 20070814
  Transmission Date: 20080115
  Serious: Yes (Other)
  Sender: FDA-Public Use
  Company Number: THYM-11447

PATIENT
  Age: 69 Year
  Sex: Male
  Weight: 82.5 kg

DRUGS (4)
  1. THYMOGLOBULIN [Suspect]
     Indication: LUNG TRANSPLANT
     Dosage: 6.25 MG ONCE IV
     Route: 042
     Dates: start: 20070119, end: 20070129
  2. METHYLPREDNISOLONE [Concomitant]
  3. VANCOMYCIN [Concomitant]
  4. AZTREONAM [Concomitant]

REACTIONS (4)
  - CHILLS [None]
  - HYPOTENSION [None]
  - LUNG DISORDER [None]
  - PYREXIA [None]
